FAERS Safety Report 6968160-6 (Version None)
Quarter: 2010Q3

REPORT INFORMATION
  Report Type: 
  Country: None (occurrence: None)
  Receive Date: 20100907
  Receipt Date: 20100827
  Transmission Date: 20110219
  Serious: Yes (Other)
  Sender: FDA-Public Use
  Company Number: SE-JNJFOC-20100210199

PATIENT
  Age: 14 Year
  Sex: Female

DRUGS (7)
  1. REMICADE [Suspect]
     Indication: JUVENILE ARTHRITIS
     Route: 042
  2. REMICADE [Suspect]
     Route: 042
  3. METHOTREXATE [Suspect]
     Indication: JUVENILE ARTHRITIS
     Route: 048
  4. CYCLOGYL [Concomitant]
  5. FOLACIN [Concomitant]
  6. DEXAMETHASONE [Concomitant]
  7. ORENCIA [Concomitant]

REACTIONS (2)
  - ALOPECIA TOTALIS [None]
  - IRITIS [None]
